FAERS Safety Report 11622550 (Version 1)
Quarter: 2015Q4

REPORT INFORMATION
  Report Type: Spontaneous
  Country: US (occurrence: US)
  Receive Date: 20151013
  Receipt Date: 20151013
  Transmission Date: 20160304
  Serious: No
  Sender: FDA-Public Use
  Company Number: US-JNJFOC-20150303337

PATIENT
  Age: 72 Year
  Sex: Female
  Weight: 102.06 kg

DRUGS (2)
  1. TYLENOL EXTRA STRENGTH [Suspect]
     Active Substance: ACETAMINOPHEN
     Indication: SCIATICA
     Dosage: 1-2 CAPLETS 3-4 TIMES
     Route: 048
  2. ADVIL PM [Concomitant]
     Active Substance: DIPHENHYDRAMINE CITRATE\IBUPROFEN
     Indication: SLEEP DISORDER THERAPY
     Route: 065

REACTIONS (4)
  - Incorrect dose administered [Unknown]
  - Product use issue [Unknown]
  - Product label issue [Unknown]
  - Back pain [Not Recovered/Not Resolved]
